FAERS Safety Report 7683487-0 (Version None)
Quarter: 2011Q3

REPORT INFORMATION
  Report Type: 
  Country: None (occurrence: None)
  Receive Date: 20110815
  Receipt Date: 20110804
  Transmission Date: 20111222
  Serious: Yes (Hospitalization, Other)
  Sender: FDA-Public Use
  Company Number: US-ASTRAZENECA-2011SE46971

PATIENT
  Age: 79 Year
  Sex: Male

DRUGS (2)
  1. ZOLADEX [Suspect]
     Route: 058
  2. CRESTOR [Suspect]
     Route: 048

REACTIONS (2)
  - PERIPHERAL VASCULAR DISORDER [None]
  - CEREBROVASCULAR ACCIDENT [None]
